FAERS Safety Report 23636037 (Version 1)
Quarter: 2024Q1

REPORT INFORMATION
  Report Type: Spontaneous
  Country: US (occurrence: None)
  Receive Date: 20240314
  Receipt Date: 20240314
  Transmission Date: 20240409
  Serious: Yes (Hospitalization)
  Sender: FDA-Public Use
  Company Number: None

PATIENT
  Age: 52 Year
  Sex: Female

DRUGS (1)
  1. ADEMPAS [Suspect]
     Active Substance: RIOCIGUAT
     Indication: Pulmonary hypertension
     Dosage: FREQUENCY : 3 TIMES A DAY;?
     Route: 048
     Dates: start: 20220826

REACTIONS (6)
  - Heart rate irregular [None]
  - Nausea [None]
  - Vomiting [None]
  - Dizziness [None]
  - Intentional product use issue [None]
  - Therapy interrupted [None]

NARRATIVE: CASE EVENT DATE: 20240314
